FAERS Safety Report 9141091 (Version 1)
Quarter: 2013Q1

REPORT INFORMATION
  Report Type: Other
  Country: US (occurrence: US)
  Receive Date: 20130305
  Receipt Date: 20130305
  Transmission Date: 20140127
  Serious: Yes (Death)
  Sender: FDA-Public Use
  Company Number: US-FRI-1000043028

PATIENT
  Age: 88 Year
  Sex: Male

DRUGS (1)
  1. CEFTAROLINE FOSAMIL [Suspect]
     Indication: PNEUMONIA
     Dosage: 400 MG EVERY 8 HOURS
     Route: 042

REACTIONS (1)
  - Death [Fatal]
